FAERS Safety Report 25786525 (Version 1)
Quarter: 2025Q3

REPORT INFORMATION
  Report Type: Spontaneous
  Country: US (occurrence: None)
  Receive Date: 20250909
  Receipt Date: 20250909
  Transmission Date: 20251021
  Serious: Yes (Other)
  Sender: FDA-CTU
  Company Number: None

PATIENT
  Age: 48 Year
  Sex: Male
  Weight: 78.75 kg

DRUGS (1)
  1. VTAMA [Suspect]
     Active Substance: TAPINAROF
     Indication: Psoriasis
     Dosage: OTHER QUANTITY : 2 SPARINGLY;?FREQUENCY : DAILY;?
     Route: 061
     Dates: start: 20250908, end: 20250909

REACTIONS (2)
  - Headache [None]
  - Pain [None]

NARRATIVE: CASE EVENT DATE: 20250909
